FAERS Safety Report 23579903 (Version 1)
Quarter: 2024Q1

REPORT INFORMATION
  Report Type: Report from Study
  Country: US (occurrence: US)
  Receive Date: 20240229
  Receipt Date: 20240229
  Transmission Date: 20240410
  Serious: Yes (Other)
  Sender: FDA-Public Use
  Company Number: US-HORIZON THERAPEUTICS-HZN-2024-000880

PATIENT

DRUGS (5)
  1. TEPEZZA [Suspect]
     Active Substance: TEPROTUMUMAB-TRBW
     Indication: Endocrine ophthalmopathy
     Dosage: FIRST INFUSION
     Route: 042
     Dates: start: 20231113
  2. LEVOTHYROXINE [Concomitant]
     Active Substance: LEVOTHYROXINE\LEVOTHYROXINE SODIUM
     Dosage: 125 UG
     Route: 065
  3. HERBALS\TURMERIC [Concomitant]
     Active Substance: HERBALS\TURMERIC
     Dosage: UNK UNK, QD
     Route: 065
  4. COENZYME Q10 [Concomitant]
     Active Substance: DIETARY SUPPLEMENT\UBIDECARENONE
     Route: 065
  5. TYLENOL [Concomitant]
     Active Substance: ACETAMINOPHEN
     Dosage: UNK UNK, TID
     Route: 065

REACTIONS (18)
  - Colitis ulcerative [Unknown]
  - Myalgia [Recovering/Resolving]
  - Pain [Unknown]
  - Dizziness [Unknown]
  - Lethargy [Unknown]
  - Cerebral disorder [Unknown]
  - Diabetic complication [Unknown]
  - Arthralgia [Recovering/Resolving]
  - Epistaxis [Unknown]
  - Soft tissue haemorrhage [Unknown]
  - Haematochezia [Unknown]
  - Blood urine present [Unknown]
  - Therapeutic product effect incomplete [Unknown]
  - Glycosylated haemoglobin increased [Unknown]
  - Blood glucose increased [Unknown]
  - Fatigue [Unknown]
  - Fatigue [Unknown]
  - Hypoacusis [Unknown]
